FAERS Safety Report 7880867 (Version 2)
Quarter: 2014Q2

REPORT INFORMATION
  Report Type: Spontaneous
  Country: None (occurrence: None)
  Receive Date: 20110310
  Receipt Date: 20140416
  Transmission Date: 20141212
  Serious: Yes (Other)
  Sender: FDA-Public Use
  Company Number: AUR-APL-2011-00566

PATIENT
  Age: 86 Year
  Sex: Male

DRUGS (4)
  1. CARVEDILOL [Suspect]
     Indication: HYPERTENSION
     Dosage: 12.5MG-TID-ORAL 37.5MG
     Route: 048
     Dates: start: 2004
  2. SIMVASTATIN [Concomitant]
  3. ALBYL-E (ALBYL-ENTEROSOLUBILE) [Concomitant]
  4. COZAAR COMP (HYZAAR) [Concomitant]

REACTIONS (3)
  - Thrombocytopenia [None]
  - Renal failure [None]
  - Blood cholesterol decreased [None]
